FAERS Safety Report 12317378 (Version 1)
Quarter: 2016Q2

REPORT INFORMATION
  Report Type: Spontaneous
  Country: US (occurrence: None)
  Receive Date: 20160428
  Receipt Date: 20160428
  Transmission Date: 20160815
  Serious: Yes (Disabling)
  Sender: FDA-Public Use
  Company Number: None

PATIENT
  Age: 59 Year
  Sex: Female
  Weight: 53.52 kg

DRUGS (12)
  1. LEVAQUIN [Suspect]
     Active Substance: LEVOFLOXACIN
     Indication: PNEUMONIA
     Route: 048
     Dates: start: 20160202, end: 20160205
  2. NORCO^S [Concomitant]
  3. FISH OIL [Concomitant]
     Active Substance: FISH OIL
  4. ZOFRAN [Concomitant]
     Active Substance: ONDANSETRON HYDROCHLORIDE
  5. KELP [Concomitant]
     Active Substance: KELP
  6. B16 [Concomitant]
  7. ZOLOFT [Concomitant]
     Active Substance: SERTRALINE HYDROCHLORIDE
  8. POTASSIUM [Concomitant]
     Active Substance: POTASSIUM
  9. VALIUM [Concomitant]
     Active Substance: DIAZEPAM
  10. GENTLE IRON [Concomitant]
  11. PROBIOTICS [Concomitant]
     Active Substance: PROBIOTICS NOS
  12. MULTIVITIAM [Concomitant]

REACTIONS (12)
  - Fatigue [None]
  - Arthralgia [None]
  - Malaise [None]
  - Gastrointestinal infection [None]
  - Vomiting [None]
  - Asthenia [None]
  - Musculoskeletal pain [None]
  - Back pain [None]
  - Mobility decreased [None]
  - Tendon pain [None]
  - Neck pain [None]
  - Impaired work ability [None]

NARRATIVE: CASE EVENT DATE: 20160202
